FAERS Safety Report 5276801-7 (Version None)
Quarter: 2007Q1

REPORT INFORMATION
  Report Type: 
  Country: None (occurrence: None)
  Receive Date: 20070327
  Receipt Date: 20070322
  Transmission Date: 20070707
  Serious: Yes (Death, Life-Threatening, Hospitalization)
  Sender: FDA-Public Use
  Company Number: JP-JNJFOC-20061206570

PATIENT
  Sex: Male

DRUGS (8)
  1. ITRACONAZOLE [Suspect]
     Indication: PULMONARY MYCOSIS
     Route: 048
     Dates: start: 20061219, end: 20061225
  2. PENTASA [Suspect]
     Indication: COLITIS ULCERATIVE
     Route: 048
     Dates: start: 20051017, end: 20060105
  3. PARIET [Suspect]
     Indication: GASTRITIS
     Route: 048
     Dates: start: 20050302, end: 20060105
  4. VOLTAREN [Suspect]
     Indication: BACK PAIN
     Route: 054
     Dates: start: 20050731, end: 20060104
  5. ZESULAN [Concomitant]
     Indication: ASTHMA
     Route: 048
  6. THEO-DUR [Concomitant]
     Indication: DRUG USE FOR UNKNOWN INDICATION
     Route: 048
  7. MUCODYNE [Concomitant]
     Indication: ASTHMA
     Route: 048
  8. BIOFERMIN [Concomitant]
     Indication: COLITIS ULCERATIVE
     Route: 048

REACTIONS (2)
  - AGRANULOCYTOSIS [None]
  - SEPTIC SHOCK [None]
